FAERS Safety Report 9644603 (Version 3)
Quarter: 2014Q1

REPORT INFORMATION
  Report Type: Spontaneous
  Country: JP (occurrence: JP)
  Receive Date: 20131025
  Receipt Date: 20140205
  Transmission Date: 20141002
  Serious: Yes (Hospitalization, Disabling)
  Sender: FDA-Public Use
  Company Number: JP-AMGEN-JPNSP2013075504

PATIENT
  Age: 81 Year
  Sex: Male

DRUGS (11)
  1. RANMARK [Suspect]
     Indication: METASTASES TO BONE
     Dosage: 120 MG, QMO
     Route: 058
     Dates: start: 20120427, end: 20130909
  2. ZOMETA [Suspect]
     Indication: METASTASES TO BONE
     Dosage: 4 MG, QMO
     Route: 041
     Dates: start: 20101117, end: 20120330
  3. DECADRON                           /00016001/ [Concomitant]
     Indication: PROSTATE CANCER
     Dosage: 0.5 MG, QD
     Route: 048
     Dates: start: 20120604
  4. ESTRACYT                           /00327002/ [Concomitant]
     Indication: PROSTATE CANCER
     Dosage: 626.8 MG, BID
     Route: 048
     Dates: start: 20130204
  5. LYRICA [Concomitant]
     Indication: CANCER PAIN
     Dosage: 150 MG, BID
     Route: 048
     Dates: start: 20110602
  6. CELECOX [Concomitant]
     Indication: CANCER PAIN
     Dosage: 200 MG, BID
     Route: 048
     Dates: start: 20120427
  7. OXYCONTIN [Concomitant]
     Indication: CANCER PAIN
     Dosage: 20 MG, BID
     Route: 048
     Dates: start: 20120309
  8. BASEN                              /01290601/ [Concomitant]
     Indication: DIABETES MELLITUS
     Dosage: 0.9 MG, TID
     Route: 048
     Dates: start: 20091204
  9. ACTOS OD [Concomitant]
     Indication: DIABETES MELLITUS
     Dosage: 30 MG, QD
     Route: 048
     Dates: start: 20060120
  10. EUGLUCON [Concomitant]
     Indication: DIABETES MELLITUS
     Dosage: 2.5 MG, QD
     Route: 048
     Dates: start: 20041025
  11. JANUVIA [Concomitant]
     Indication: DIABETES MELLITUS
     Dosage: 100 MG, QD
     Route: 048
     Dates: start: 20111111

REACTIONS (2)
  - Osteomyelitis [Recovered/Resolved]
  - Osteomyelitis [Not Recovered/Not Resolved]
